FAERS Safety Report 6368788-0 (Version None)
Quarter: 2009Q3

REPORT INFORMATION
  Report Type: 
  Country: None (occurrence: None)
  Receive Date: 20090916
  Receipt Date: 20090901
  Transmission Date: 20100115
  Serious: Yes (Hospitalization)
  Sender: FDA-Public Use
  Company Number: 2009US000025

PATIENT
  Age: 58 Year
  Sex: Female

DRUGS (2)
  1. ENTEREG [Suspect]
     Indication: POSTOPERATIVE ILEUS
     Dosage: 12 MG; 1X; PO
     Route: 048
     Dates: start: 20090828, end: 20090828
  2. TYLENOL (CAPLET) [Concomitant]

REACTIONS (7)
  - BRADYCARDIA [None]
  - CARDIAC DISORDER [None]
  - HYPOKINESIA [None]
  - HYPOTENSION [None]
  - INCORRECT DOSE ADMINISTERED [None]
  - MYOCARDIAL INFARCTION [None]
  - VENTRICULAR TACHYCARDIA [None]
